FAERS Safety Report 4747901-2 (Version None)
Quarter: 2005Q3

REPORT INFORMATION
  Report Type: 
  Country: None (occurrence: None)
  Receive Date: 20050817
  Receipt Date: 20050817
  Transmission Date: 20060218
  Serious: Yes (Hospitalization)
  Sender: FDA-Public Use
  Company Number: None

PATIENT
  Age: 43 Year
  Sex: Male
  Weight: 80 kg

DRUGS (15)
  1. CARBAMAZEPINE [Suspect]
     Indication: BIPOLAR DISORDER
     Dosage: 200MG TID ORAL
     Route: 048
     Dates: start: 20050614, end: 20050719
  2. CARBAMAZEPINE [Suspect]
     Indication: SCHIZOAFFECTIVE DISORDER
     Dosage: 200MG TID ORAL
     Route: 048
     Dates: start: 20050614, end: 20050719
  3. BUSPIRONE [Concomitant]
  4. CODEINE/GUAIFENESIN SYRUP [Concomitant]
  5. CYCLOBENZAPRINE HCL [Concomitant]
  6. GUAIFENESIN/DM [Concomitant]
  7. FOLIC ACID [Concomitant]
  8. HYDROXYZINE [Concomitant]
  9. INSULIN HUMAN [Concomitant]
  10. MULTI-VITAMINS [Concomitant]
  11. PANCREASE MT16 [Concomitant]
  12. QUETIAPINE FUMARATE [Concomitant]
  13. THIAMINE [Concomitant]
  14. TRIAMCINOLONE CREAM [Concomitant]
  15. TRIAMCINOLONE DENTAL PASTE [Concomitant]

REACTIONS (13)
  - BRONCHITIS [None]
  - CHILLS [None]
  - COUGH [None]
  - DEHYDRATION [None]
  - DRUG ERUPTION [None]
  - DYSPHAGIA [None]
  - EOSINOPHILIA [None]
  - HYPERHIDROSIS [None]
  - LIVER FUNCTION TEST ABNORMAL [None]
  - MOUTH ULCERATION [None]
  - PAIN [None]
  - PYREXIA [None]
  - SKIN EXFOLIATION [None]
